FAERS Safety Report 9850997 (Version 1)
Quarter: 2014Q1

REPORT INFORMATION
  Report Type: Spontaneous
  Country: US (occurrence: US)
  Receive Date: 20140128
  Receipt Date: 20140128
  Transmission Date: 20141002
  Serious: No
  Sender: FDA-Public Use
  Company Number: US-009507513-1401USA010459

PATIENT
  Age: 23 Year
  Sex: Female
  Weight: 68.27 kg

DRUGS (4)
  1. METHYLPREDNISOLONE SODIUM SUCCINATE [Suspect]
     Indication: ACUTE DISSEMINATED ENCEPHALOMYELITIS
  2. BLOOD, PLASMA [Concomitant]
  3. ACYCLOVIR [Concomitant]
     Route: 042
  4. GLOBULIN, IMMUNE [Concomitant]
     Route: 042

REACTIONS (1)
  - Exposure during pregnancy [Recovered/Resolved]
